FAERS Safety Report 5706392-5 (Version None)
Quarter: 2008Q2

REPORT INFORMATION
  Report Type: 
  Country: None (occurrence: None)
  Receive Date: 20080415
  Receipt Date: 20080402
  Transmission Date: 20081010
  Serious: Yes (Other)
  Sender: FDA-Public Use
  Company Number: JP-MERCK-0804USA00921

PATIENT
  Age: 69 Year
  Sex: Female

DRUGS (7)
  1. FOSAMAX [Suspect]
     Indication: OSTEOPOROSIS
     Route: 048
     Dates: start: 20071024, end: 20071226
  2. PREDONINE [Concomitant]
     Indication: MUSCULOSKELETAL PAIN
     Route: 048
  3. RHEUMATREX [Concomitant]
     Indication: MUSCULOSKELETAL PAIN
     Route: 048
  4. LAFUTIDINE [Concomitant]
     Indication: PROPHYLAXIS AGAINST GASTROINTESTINAL ULCER
     Route: 048
  5. LOCHOL [Concomitant]
     Indication: BLOOD CHOLESTEROL
     Route: 048
  6. RISEDRONATE SODIUM [Concomitant]
     Route: 048
     Dates: end: 20071024
  7. RISEDRONATE SODIUM [Concomitant]
     Route: 048
     Dates: start: 20071201

REACTIONS (1)
  - LIVER DISORDER [None]
